FAERS Safety Report 21733284 (Version 1)
Quarter: 2022Q4

REPORT INFORMATION
  Report Type: Spontaneous
  Country: US (occurrence: None)
  Receive Date: 20221214
  Receipt Date: 20221214
  Transmission Date: 20230113
  Serious: No
  Sender: FDA-Public Use
  Company Number: None

PATIENT
  Age: 42 Year
  Sex: Female
  Weight: 54 kg

DRUGS (2)
  1. BUPROPION [Suspect]
     Active Substance: BUPROPION
     Indication: Depression
     Dosage: OTHER QUANTITY : 1 TABLET(S);?FREQUENCY : DAILY;?
     Route: 048
     Dates: start: 20221205, end: 20221214
  2. DAILY WOMENS MULTI VITAMIN [Concomitant]

REACTIONS (4)
  - Insomnia [None]
  - Increased appetite [None]
  - Affective disorder [None]
  - Drug ineffective [None]

NARRATIVE: CASE EVENT DATE: 20221214
